FAERS Safety Report 6230873-1 (Version None)
Quarter: 2009Q2

REPORT INFORMATION
  Report Type: 
  Country: None (occurrence: None)
  Receive Date: 20090616
  Receipt Date: 20090604
  Transmission Date: 20091009
  Serious: Yes (Hospitalization)
  Sender: FDA-Public Use
  Company Number: PHHY2009JP22211

PATIENT
  Sex: Female
  Weight: 58 kg

DRUGS (8)
  1. SIMULECT [Suspect]
     Indication: RENAL TRANSPLANT
     Dosage: 20 MG/DAY
     Route: 042
     Dates: start: 20060614
  2. SIMULECT [Suspect]
     Dosage: 20 MG/DAY
     Route: 042
     Dates: start: 20060618
  3. BREDININ [Suspect]
     Dosage: 500 MG/DAY
     Route: 048
     Dates: start: 20060616
  4. PROGRAF [Suspect]
     Indication: RENAL TRANSPLANT
     Dosage: 8 MG/DAY
     Route: 048
     Dates: start: 20060612
  5. PREDNISOLONE [Suspect]
     Indication: RENAL TRANSPLANT
     Dosage: 60 MG/DAY
     Route: 048
     Dates: start: 20060612
  6. CELLCEPT [Concomitant]
     Indication: RENAL TRANSPLANT
     Dosage: 1500 MG, UNK
     Route: 048
     Dates: start: 20060608, end: 20060614
  7. PARIET [Concomitant]
     Indication: PROPHYLAXIS AGAINST GASTROINTESTINAL ULCER
     Dosage: UNK
     Route: 048
  8. BASEN [Concomitant]
     Indication: HYPERGLYCAEMIA
     Dosage: UNK
     Route: 048

REACTIONS (3)
  - CYTOMEGALOVIRUS INFECTION [None]
  - KIDNEY TRANSPLANT REJECTION [None]
  - NEPHROPATHY [None]
